FAERS Safety Report 7694278-9 (Version None)
Quarter: 2011Q3

REPORT INFORMATION
  Report Type: 
  Country: None (occurrence: None)
  Receive Date: 20110819
  Receipt Date: 20110812
  Transmission Date: 20111222
  Serious: Yes (Other)
  Sender: FDA-Public Use
  Company Number: PL-GLAXOSMITHKLINE-B0740258A

PATIENT
  Sex: Male

DRUGS (4)
  1. CEFUROXIME [Concomitant]
  2. ZINACEF [Suspect]
     Indication: PRODUCT USED FOR UNKNOWN INDICATION
     Route: 042
     Dates: start: 20110625, end: 20110625
  3. MANNITOL [Concomitant]
     Route: 042
     Dates: start: 20110625, end: 20110625
  4. CLINDAMYCIN HCL [Concomitant]

REACTIONS (3)
  - RASH GENERALISED [None]
  - DYSPNOEA [None]
  - OEDEMA [None]
